FAERS Safety Report 5350520-0 (Version None)
Quarter: 2007Q2

REPORT INFORMATION
  Report Type: 
  Country: None (occurrence: None)
  Receive Date: 20070606
  Receipt Date: 20070606
  Transmission Date: 20071010
  Serious: No
  Sender: FDA-Public Use
  Company Number: None

PATIENT
  Age: 43 Year
  Sex: Male

DRUGS (1)
  1. ZOCOR [Suspect]
     Indication: HYPERLIPIDAEMIA
     Dosage: 40MG ONCE DAILY PO
     Route: 048
     Dates: start: 20070221, end: 20070521

REACTIONS (2)
  - MUSCLE SPASMS [None]
  - MYALGIA [None]
